FAERS Safety Report 21977203 (Version 2)
Quarter: 2023Q1

REPORT INFORMATION
  Report Type: Spontaneous
  Country: US (occurrence: None)
  Receive Date: 20230210
  Receipt Date: 20230323
  Transmission Date: 20230418
  Serious: No
  Sender: FDA-Public Use
  Company Number: 2023A023452

PATIENT
  Age: 53 Year
  Sex: Female

DRUGS (1)
  1. CRESTOR [Suspect]
     Active Substance: ROSUVASTATIN CALCIUM
     Indication: Blood cholesterol increased
     Dosage: 5.0MG UNKNOWN
     Route: 048
     Dates: start: 20220507, end: 20221013

REACTIONS (4)
  - Thyroid mass [Unknown]
  - Thirst [Recovered/Resolved]
  - Blood cholesterol increased [Unknown]
  - Thyroid hormones increased [Unknown]

NARRATIVE: CASE EVENT DATE: 20220512
